FAERS Safety Report 12770495 (Version 1)
Quarter: 2016Q3

REPORT INFORMATION
  Report Type: Spontaneous
  Country: US (occurrence: US)
  Receive Date: 20160921
  Receipt Date: 20160921
  Transmission Date: 20161109
  Serious: Yes (Death)
  Sender: FDA-Public Use
  Company Number: None

PATIENT
  Age: 71 Year
  Sex: Male

DRUGS (2)
  1. NOXAFIL [Suspect]
     Active Substance: POSACONAZOLE
     Indication: HEART TRANSPLANT
     Route: 048
     Dates: start: 20150403
  2. CRESTOR [Suspect]
     Active Substance: ROSUVASTATIN CALCIUM
     Indication: HEART TRANSPLANT
     Route: 048
     Dates: start: 20150115

REACTIONS (1)
  - Death [None]

NARRATIVE: CASE EVENT DATE: 20160916
